FAERS Safety Report 11224943 (Version 1)
Quarter: 2015Q2

REPORT INFORMATION
  Report Type: Spontaneous
  Country: US (occurrence: None)
  Receive Date: 20150625
  Receipt Date: 20150625
  Transmission Date: 20150821
  Serious: Yes (Other)
  Sender: FDA-Public Use
  Company Number: ADE15-043

PATIENT
  Age: 79 Year
  Sex: Male
  Weight: 97 kg

DRUGS (3)
  1. MIDAZOLAM [Concomitant]
     Active Substance: MIDAZOLAM\MIDAZOLAM HYDROCHLORIDE
  2. HEPARIN SODIUM INJECTION, MDV, 10ML, 1,000UNITS/ML, 25XSAGENT [Suspect]
     Active Substance: HEPARIN SODIUM
     Indication: PERCUTANEOUS CORONARY INTERVENTION
     Route: 042
     Dates: start: 20150608, end: 20150608
  3. FENTANYL. [Concomitant]
     Active Substance: FENTANYL

REACTIONS (1)
  - Coagulation time abnormal [None]

NARRATIVE: CASE EVENT DATE: 20150608
